FAERS Safety Report 19834558 (Version 1)
Quarter: 2021Q3

REPORT INFORMATION
  Report Type: Spontaneous
  Country: US (occurrence: US)
  Receive Date: 20210915
  Receipt Date: 20210915
  Transmission Date: 20211014
  Serious: No
  Sender: FDA-Public Use
  Company Number: US-LEADIANT BIOSCIENCES INC-2020STPI000322

PATIENT
  Age: 52 Year
  Sex: Female

DRUGS (25)
  1. HYDROXYZINE HCL [Concomitant]
     Active Substance: HYDROXYZINE HYDROCHLORIDE
  2. ONDANSETRON [Concomitant]
     Active Substance: ONDANSETRON
  3. MATULANE [Suspect]
     Active Substance: PROCARBAZINE HYDROCHLORIDE
     Indication: BRAIN NEOPLASM MALIGNANT
     Dosage: 100 MG,QD ON DAYS 8?21 OF 42 DAY CYCLE
     Route: 048
     Dates: start: 20191217
  4. GLEOSTINE [Concomitant]
     Active Substance: LOMUSTINE
     Dosage: 2 CAPSULES ON DAY 1 OF 42 DAY CYCLE, TAKE IN COMBINATION WITH 1 CAPSULE FOR A TOTAL DOSE OF 210 MG
     Route: 048
  5. AMLODIPINE BESYLATE. [Concomitant]
     Active Substance: AMLODIPINE BESYLATE
  6. LOSARTAN. [Concomitant]
     Active Substance: LOSARTAN
  7. OMEPRAZOLE. [Concomitant]
     Active Substance: OMEPRAZOLE
  8. APREPITANT. [Concomitant]
     Active Substance: APREPITANT
     Dosage: ONE CAPSULE, EVERY 1 HOUR PRIOR TO DAY 1 OF TREATMENT CYCLE
     Route: 048
  9. GLEOSTINE [Concomitant]
     Active Substance: LOMUSTINE
     Dosage: 1 CAPSULE ON DAY 1 OF 42 DAY CYCLE, TAKE IN COMBINATION WITH 1 CAPSULES FOR A TOTAL DOSE OF 210 MG
     Route: 048
  10. QUETIAPINE. [Concomitant]
     Active Substance: QUETIAPINE
  11. RIZATRIPTAN ODT [Concomitant]
     Active Substance: RIZATRIPTAN BENZOATE
  12. TRAZODONE [Concomitant]
     Active Substance: TRAZODONE HYDROCHLORIDE
  13. VENLAFAXINE [Concomitant]
     Active Substance: VENLAFAXINE HYDROCHLORIDE
  14. CARBAMAZEPINE. [Concomitant]
     Active Substance: CARBAMAZEPINE
  15. DEXAMETHASONE. [Concomitant]
     Active Substance: DEXAMETHASONE
  16. GABAPENTIN. [Concomitant]
     Active Substance: GABAPENTIN
  17. VITAMIN B COMPLEX/B12 [VITAMIN B COMPLEX] [Concomitant]
  18. GRANISETRON [Concomitant]
     Active Substance: GRANISETRON
  19. ASPIRIN (E.C.) [Concomitant]
     Active Substance: ASPIRIN
  20. ATORVASTATIN [Concomitant]
     Active Substance: ATORVASTATIN
  21. VITAMIN C ACID [Concomitant]
     Active Substance: ASCORBIC ACID
  22. ZETIA [Concomitant]
     Active Substance: EZETIMIBE
  23. IBUPROFEN. [Concomitant]
     Active Substance: IBUPROFEN
  24. NITROGLYCERIN. [Concomitant]
     Active Substance: NITROGLYCERIN
  25. LORATADINE. [Concomitant]
     Active Substance: LORATADINE

REACTIONS (4)
  - Dizziness [Unknown]
  - Neutropenia [Unknown]
  - Thrombocytopenia [Unknown]
  - Nausea [Unknown]

NARRATIVE: CASE EVENT DATE: 20200801
